FAERS Safety Report 4659828-5 (Version None)
Quarter: 2005Q2

REPORT INFORMATION
  Report Type: 
  Country: None (occurrence: None)
  Receive Date: 20050510
  Receipt Date: 20050426
  Transmission Date: 20051028
  Serious: Yes (Other)
  Sender: FDA-Public Use
  Company Number: GBR-2005-0001668

PATIENT
  Age: 51 Year
  Sex: Male

DRUGS (10)
  1. MORPHINE SULFATE (MORPHINE SULFATE) [Suspect]
     Indication: CANCER PAIN
     Dosage: 30 MG, BID,
     Dates: end: 20050407
  2. PALLADONE [Suspect]
     Indication: CANCER PAIN
     Dosage: 4 MG, BID, ORAL
     Route: 048
     Dates: start: 20050407, end: 20050413
  3. TRANSTEC 35 (BUPRENORPHINE HYDROCHLORIDE) TRANSDERMAL PATCH [Suspect]
     Indication: CANCER PAIN
     Dosage: 840 MCG, DAILY, TRANSDERMAL
     Route: 062
     Dates: start: 20050413, end: 20050414
  4. DAFALGAN [Concomitant]
  5. DIPYRONE TAB [Concomitant]
  6. ZANTAC [Concomitant]
  7. MOVICOL (MACROGOL, SODIUM CHLORIDE, POTASSIUM CHLORIDE, SODIUM BICARBO [Concomitant]
  8. PAROXETINE HCL [Concomitant]
  9. MEDROL [Concomitant]
  10. TRAZOLAN (TRAZODONE HYDROCHLORIDE) [Concomitant]

REACTIONS (5)
  - CONFUSIONAL STATE [None]
  - DRUG WITHDRAWAL SYNDROME [None]
  - HALLUCINATION [None]
  - HYPERPYREXIA [None]
  - SOMNOLENCE [None]
